FAERS Safety Report 10338257 (Version 3)
Quarter: 2014Q3

REPORT INFORMATION
  Report Type: Spontaneous
  Country: US (occurrence: US)
  Receive Date: 20140724
  Receipt Date: 20140929
  Transmission Date: 20150326
  Serious: Yes (Other)
  Sender: FDA-Public Use
  Company Number: US-PFIZER INC-2014203001

PATIENT
  Age: 58 Year
  Sex: Male
  Weight: 96.94 kg

DRUGS (9)
  1. SODIUM CHLORIDE. [Concomitant]
     Active Substance: SODIUM CHLORIDE
     Dosage: UNK (100 ML/HR,CONTINUOUS)
     Route: 042
     Dates: start: 20140318
  2. ASPRIN [Concomitant]
     Active Substance: ASPIRIN
     Dosage: 325 MG, SINGLE (ONCE)
     Route: 048
     Dates: start: 20140318, end: 20140318
  3. RAPAMUNE [Suspect]
     Active Substance: SIROLIMUS
     Indication: HEART TRANSPLANT
     Dosage: 2 MG, WEEKLY, (1 MG TWO TIMES PER WEEK)
     Route: 048
     Dates: start: 20080303, end: 20140318
  4. PLAVIX [Concomitant]
     Active Substance: CLOPIDOGREL BISULFATE
     Dosage: 75 MG, SINGLE (ONCE)
     Route: 048
     Dates: start: 20140318, end: 20140318
  5. PROGRAF [Concomitant]
     Active Substance: TACROLIMUS\TACROLIMUS ANHYDROUS
     Indication: IMMUNOSUPPRESSION
     Dosage: 1 MG, SINGLE (ONCE)
     Route: 048
     Dates: start: 20140318, end: 20140318
  6. NORMODYNE [Concomitant]
     Active Substance: LABETALOL HYDROCHLORIDE
     Dosage: 200 MG, SINGLE (ONCE)
     Route: 048
     Dates: start: 20140318, end: 20140318
  7. CATAPRES [Concomitant]
     Active Substance: CLONIDINE HYDROCHLORIDE
     Indication: HYPERTENSION
     Dosage: 1 MG, SINGLE  (ONCE) PRN
     Route: 048
     Dates: start: 20140318, end: 20140318
  8. RAPAMUNE [Suspect]
     Active Substance: SIROLIMUS
     Dosage: UNK
     Route: 048
  9. MYFORTIC [Concomitant]
     Active Substance: MYCOPHENOLATE SODIUM
     Indication: IMMUNOSUPPRESSION
     Dosage: 720 MG, SINGLE (ONCE)
     Route: 048
     Dates: start: 20140318, end: 20140318

REACTIONS (2)
  - Impaired healing [Recovered/Resolved]
  - Off label use [Unknown]

NARRATIVE: CASE EVENT DATE: 20080303
